FAERS Safety Report 15540050 (Version 1)
Quarter: 2018Q4

REPORT INFORMATION
  Report Type: Report from Study
  Country: US (occurrence: US)
  Receive Date: 20181023
  Receipt Date: 20181023
  Transmission Date: 20190205
  Serious: No
  Sender: FDA-Public Use
  Company Number: PHEH2018US044079

PATIENT
  Sex: Female

DRUGS (1)
  1. TASIGNA [Suspect]
     Active Substance: NILOTINIB
     Indication: PRODUCT USED FOR UNKNOWN INDICATION
     Route: 048

REACTIONS (8)
  - Constipation [Unknown]
  - Vocal cord thickening [Unknown]
  - Aphonia [Unknown]
  - Asthma [Unknown]
  - Dysgeusia [Unknown]
  - Contusion [Unknown]
  - Drug intolerance [Unknown]
  - Diarrhoea [Unknown]
